FAERS Safety Report 9913566 (Version 1)
Quarter: 2014Q1

REPORT INFORMATION
  Report Type: Spontaneous
  Country: US (occurrence: None)
  Receive Date: 20140218
  Receipt Date: 20140218
  Transmission Date: 20141002
  Serious: Yes (Disabling)
  Sender: FDA-Public Use
  Company Number: None

PATIENT
  Age: 55 Year
  Sex: Male
  Weight: 89.7 kg

DRUGS (11)
  1. CYTARABINE [Suspect]
     Indication: METASTASES TO MENINGES
     Route: 037
     Dates: start: 20130712, end: 20130822
  2. COLACE [Concomitant]
  3. NORCO [Concomitant]
  4. LEVETIRACETAM [Concomitant]
  5. METHOCARBAMOL [Concomitant]
  6. BACTRIM DS [Concomitant]
  7. METHOTREXATE [Concomitant]
  8. RITUXAN [Concomitant]
  9. ONDANSETRON [Concomitant]
  10. SODIUM BICARBONATE [Concomitant]
  11. HEPARIN [Concomitant]

REACTIONS (5)
  - Idiosyncratic drug reaction [None]
  - Myelopathy [None]
  - Nervous system disorder [None]
  - Muscular weakness [None]
  - Local swelling [None]
